FAERS Safety Report 10141168 (Version 1)
Quarter: 2014Q2

REPORT INFORMATION
  Report Type: Spontaneous
  Country: GB (occurrence: GB)
  Receive Date: 20140429
  Receipt Date: 20140429
  Transmission Date: 20141212
  Serious: Yes (Death, Other)
  Sender: FDA-Public Use
  Company Number: PHHY2014GB050550

PATIENT
  Age: 93 Year
  Sex: Female

DRUGS (2)
  1. ALENDRONIC ACID [Suspect]
  2. ACETYLSALICYLIC ACID [Suspect]

REACTIONS (5)
  - Death [Fatal]
  - Heyde^s syndrome [Not Recovered/Not Resolved]
  - Melaena [Not Recovered/Not Resolved]
  - Gastritis [Unknown]
  - Duodenal ulcer [Unknown]
